FAERS Safety Report 4986041-4 (Version None)
Quarter: 2006Q2

REPORT INFORMATION
  Report Type: 
  Country: None (occurrence: None)
  Receive Date: 20060428
  Receipt Date: 20060424
  Transmission Date: 20061013
  Serious: Yes (Disabling)
  Sender: FDA-Public Use
  Company Number: 2006SE02339

PATIENT
  Age: 25636 Day
  Sex: Male
  Weight: 67 kg

DRUGS (6)
  1. BLOPRESS [Suspect]
     Indication: HYPERTENSION
     Route: 048
     Dates: start: 20030225
  2. BLOPRESS [Suspect]
     Route: 048
     Dates: end: 20051114
  3. BLOPRESS [Suspect]
     Route: 048
     Dates: start: 20051115
  4. CALCIUM CHANNEL BLOCKERS [Concomitant]
     Indication: HYPERTENSION
     Route: 065
  5. DIURETICS [Concomitant]
     Indication: HYPERTENSION
     Route: 065
  6. SULFONAMIDES, UREA DERIVATIVES [Concomitant]
     Indication: DIABETES MELLITUS NON-INSULIN-DEPENDENT
     Route: 048

REACTIONS (1)
  - DIABETIC NEPHROPATHY [None]
